FAERS Safety Report 11325451 (Version 5)
Quarter: 2016Q2

REPORT INFORMATION
  Report Type: Report from Study
  Country: US (occurrence: US)
  Receive Date: 20150730
  Receipt Date: 20160616
  Transmission Date: 20160815
  Serious: Yes (Hospitalization, Other)
  Sender: FDA-Public Use
  Company Number: US-JNJFOC-20150716650

PATIENT
  Age: 72 Year
  Sex: Female

DRUGS (18)
  1. PROBIOTIC [Concomitant]
     Active Substance: PROBIOTICS NOS
  2. ASPIRIN. [Concomitant]
     Active Substance: ASPIRIN
  3. IMBRUVICA [Suspect]
     Active Substance: IBRUTINIB
     Indication: MANTLE CELL LYMPHOMA
     Route: 048
  4. DILTIAZEM [Concomitant]
     Active Substance: DILTIAZEM
     Indication: ATRIAL FIBRILLATION
     Route: 048
     Dates: start: 20140501
  5. ASPIRIN. [Concomitant]
     Active Substance: ASPIRIN
  6. VITAMIN C [Concomitant]
     Active Substance: ASCORBIC ACID
  7. LECITHIN [Concomitant]
     Active Substance: LECITHIN
  8. TAMIFLU [Concomitant]
     Active Substance: OSELTAMIVIR PHOSPHATE
  9. VITAMIN E\VITAMINS [Concomitant]
     Active Substance: .ALPHA.-TOCOPHEROL\VITAMINS
  10. VITAMINUM B-COMPLEX [Concomitant]
  11. ARMOUR THYROID [Concomitant]
     Active Substance: THYROID, PORCINE
     Indication: THYROID DISORDER
     Route: 048
  12. BACTRIM [Concomitant]
     Active Substance: SULFAMETHOXAZOLE\TRIMETHOPRIM
  13. KLOR-CON [Concomitant]
     Active Substance: POTASSIUM CHLORIDE
     Indication: MINERAL SUPPLEMENTATION
     Dates: start: 20140501
  14. DILTIAZEM [Concomitant]
     Active Substance: DILTIAZEM
     Indication: HYPOTHYROIDISM
     Route: 048
     Dates: start: 20140501
  15. LEVOTHYROXINE. [Concomitant]
     Active Substance: LEVOTHYROXINE
     Indication: HYPOTHYROIDISM
  16. IMBRUVICA [Suspect]
     Active Substance: IBRUTINIB
     Indication: MANTLE CELL LYMPHOMA
     Route: 048
     Dates: start: 20130710
  17. CALCIUM [Concomitant]
     Active Substance: CALCIUM
  18. CHROMIUM PICOLINATE [Concomitant]
     Active Substance: CHROMIUM PICOLINATE

REACTIONS (13)
  - Surgery [Unknown]
  - Deafness [Unknown]
  - Hypoacusis [Not Recovered/Not Resolved]
  - Respiratory tract infection [Recovered/Resolved]
  - Pneumonia [Recovered/Resolved]
  - Cough [Unknown]
  - Eye infection [Recovered/Resolved]
  - Ear haemorrhage [Unknown]
  - Atrial fibrillation [Not Recovered/Not Resolved]
  - Ear infection [Recovered/Resolved]
  - Tympanic membrane perforation [Not Recovered/Not Resolved]
  - Protein total abnormal [Recovered/Resolved]
  - Sinusitis [Recovered/Resolved]

NARRATIVE: CASE EVENT DATE: 2015
